FAERS Safety Report 20658092 (Version 1)
Quarter: 2022Q1

REPORT INFORMATION
  Report Type: Spontaneous
  Country: US (occurrence: None)
  Receive Date: 20220330
  Receipt Date: 20220330
  Transmission Date: 20220423
  Serious: Yes (Hospitalization)
  Sender: FDA-Public Use
  Company Number: None

PATIENT
  Sex: Male

DRUGS (4)
  1. MYCOPHENOLIC ACID [Suspect]
     Active Substance: MYCOPHENOLIC ACID
     Indication: Renal transplant
     Route: 048
     Dates: start: 20150605
  2. SENSIPAR [Concomitant]
     Active Substance: CINACALCET HYDROCHLORIDE
  3. TACROLIMUS [Concomitant]
     Active Substance: TACROLIMUS
  4. TACROLIMUS A [Concomitant]

REACTIONS (1)
  - Angina pectoris [None]
